FAERS Safety Report 15496255 (Version 1)
Quarter: 2018Q4

REPORT INFORMATION
  Report Type: Spontaneous
  Country: PL (occurrence: PL)
  Receive Date: 20181012
  Receipt Date: 20181012
  Transmission Date: 20190205
  Serious: Yes (Death, Hospitalization, Other)
  Sender: FDA-Public Use
  Company Number: PL-B.I. PHARMACEUTICALS,INC./RIDGEFIELD-2018-BI-050122

PATIENT
  Age: 45 Year
  Sex: Male

DRUGS (1)
  1. GILOTRIF [Suspect]
     Active Substance: AFATINIB
     Indication: LUNG NEOPLASM MALIGNANT
     Route: 065
     Dates: start: 201802

REACTIONS (10)
  - General physical health deterioration [Unknown]
  - Endocarditis [Recovering/Resolving]
  - Diarrhoea [Unknown]
  - Death [Fatal]
  - Body temperature abnormal [Unknown]
  - Neurological symptom [Unknown]
  - Oedema [Unknown]
  - Weight decreased [Unknown]
  - Skin lesion [Unknown]
  - Nail disorder [Unknown]

NARRATIVE: CASE EVENT DATE: 201803
